FAERS Safety Report 9995734 (Version 1)
Quarter: 2014Q1

REPORT INFORMATION
  Report Type: Spontaneous
  Country: US (occurrence: None)
  Receive Date: 20140310
  Receipt Date: 20140310
  Transmission Date: 20141002
  Serious: Yes (Hospitalization, Disabling, Other)
  Sender: FDA-Public Use
  Company Number: None

PATIENT
  Age: 77 Year
  Sex: Female
  Weight: 63.5 kg

DRUGS (1)
  1. POTASSIUM CHLORIDE [Suspect]
     Indication: BLOOD POTASSIUM DECREASED
     Dosage: 10 TBCR?1 PILL TWICE DAILY?TWICE DAILY ?BY MOUTH, AFTER FOOD WITH 8OZS. IVATER
     Route: 048
     Dates: start: 20130910, end: 20131028

REACTIONS (5)
  - Flatulence [None]
  - Abdominal distension [None]
  - Local swelling [None]
  - Product substitution issue [None]
  - Product coating issue [None]
